FAERS Safety Report 5222503-2 (Version None)
Quarter: 2007Q1

REPORT INFORMATION
  Report Type: 
  Country: None (occurrence: None)
  Receive Date: 20070129
  Receipt Date: 20070117
  Transmission Date: 20070707
  Serious: Yes (Death, Other)
  Sender: FDA-Public Use
  Company Number: US-PURDUE-USA_2003_0006361

PATIENT
  Age: 23 Year
  Sex: Female
  Weight: 61 kg

DRUGS (4)
  1. OXYCONTIN [Suspect]
     Indication: DRUG ABUSER
     Dosage: UNK MG, UNK
     Route: 065
  2. ALCOHOL [Suspect]
     Indication: ALCOHOL USE
     Dosage: UNK ML, UNK
     Route: 065
  3. DIAZEPAM [Suspect]
     Indication: DRUG USE FOR UNKNOWN INDICATION
  4. VENLAFAXINE HCL [Suspect]
     Indication: DRUG USE FOR UNKNOWN INDICATION

REACTIONS (4)
  - ABDOMINAL INJURY [None]
  - DROWNING [None]
  - DRUG TOXICITY [None]
  - FALL [None]
